FAERS Safety Report 5598123-7 (Version None)
Quarter: 2008Q1

REPORT INFORMATION
  Report Type: 
  Country: None (occurrence: None)
  Receive Date: 20080122
  Receipt Date: 20080114
  Transmission Date: 20080703
  Serious: Yes (Death, Hospitalization)
  Sender: FDA-Public Use
  Company Number: NL-JNJFOC-20080103372

PATIENT
  Sex: Male

DRUGS (4)
  1. REMICADE [Suspect]
     Indication: CROHN'S DISEASE
     Dosage: 4 DOSES
     Route: 042
  2. IMURAN [Concomitant]
  3. OMEPRAZOLE [Concomitant]
  4. IMODIUM [Concomitant]

REACTIONS (2)
  - PERINEAL ABSCESS [None]
  - RECTAL CANCER [None]
